FAERS Safety Report 5450218-4 (Version None)
Quarter: 2007Q3

REPORT INFORMATION
  Report Type: 
  Country: None (occurrence: None)
  Receive Date: 20070912
  Receipt Date: 20070829
  Transmission Date: 20080115
  Serious: Yes (Other)
  Sender: FDA-Public Use
  Company Number: US-BAUSCH-2005BL004790

PATIENT
  Age: 58 Year
  Sex: Female
  Weight: 87 kg

DRUGS (2)
  1. FLUOCINOLONE ACETONIDE [Suspect]
     Indication: UVEITIS
     Route: 047
     Dates: start: 20010928, end: 20040525
  2. FLUOCINOLONE ACETONIDE [Suspect]
     Route: 047
     Dates: start: 20040525

REACTIONS (3)
  - INFLAMMATION [None]
  - VISUAL ACUITY REDUCED [None]
  - VITREOUS FIBRIN [None]
